FAERS Safety Report 6832605-2 (Version None)
Quarter: 2010Q3

REPORT INFORMATION
  Report Type: 
  Country: None (occurrence: None)
  Receive Date: 20100712
  Receipt Date: 20070318
  Transmission Date: 20110219
  Serious: No
  Sender: FDA-Public Use
  Company Number: US-PFIZER INC-2007021133

PATIENT
  Sex: Female
  Weight: 64.41 kg

DRUGS (5)
  1. CHANTIX [Suspect]
     Dates: start: 20070303
  2. FIORINAL-C 1/4 [Concomitant]
     Indication: MIGRAINE
  3. ALEVE (CAPLET) [Concomitant]
  4. CYMBALTA [Concomitant]
     Indication: DEPRESSION
  5. ALLEGRA D 24 HOUR [Concomitant]

REACTIONS (1)
  - RASH [None]
